FAERS Safety Report 6561639-0 (Version None)
Quarter: 2010Q1

REPORT INFORMATION
  Report Type: 
  Country: None (occurrence: None)
  Receive Date: 20100130
  Receipt Date: 20091025
  Transmission Date: 20100710
  Serious: No
  Sender: FDA-Public Use
  Company Number: US-ABBOTT-09P-163-0605068-00

PATIENT
  Sex: Female

DRUGS (3)
  1. HUMIRA [Suspect]
     Indication: CROHN'S DISEASE
     Dates: start: 20081001, end: 20090201
  2. HUMIRA [Suspect]
     Dates: start: 20090401
  3. UNKNOWN IMMUNOSUPRRESSANT DRUG [Suspect]
     Indication: DRUG USE FOR UNKNOWN INDICATION

REACTIONS (2)
  - BALANCE DISORDER [None]
  - JOINT INSTABILITY [None]
